FAERS Safety Report 6200267-3 (Version None)
Quarter: 2009Q2

REPORT INFORMATION
  Report Type: 
  Country: None (occurrence: None)
  Receive Date: 20090522
  Receipt Date: 20090513
  Transmission Date: 20091009
  Serious: Yes (Life-Threatening, Hospitalization)
  Sender: FDA-Public Use
  Company Number: US-JNJFOC-20090503085

PATIENT
  Sex: Female
  Weight: 56.7 kg

DRUGS (5)
  1. REMICADE [Suspect]
     Route: 042
  2. REMICADE [Suspect]
     Indication: CROHN'S DISEASE
     Route: 042
  3. ZOLOFT [Concomitant]
     Indication: PANIC ATTACK
  4. XANAX [Concomitant]
     Indication: PANIC ATTACK
  5. CONTRACEPTIVE [Concomitant]
     Indication: HORMONE LEVEL ABNORMAL

REACTIONS (1)
  - PANIC ATTACK [None]
